FAERS Safety Report 6409958-2 (Version None)
Quarter: 2009Q4

REPORT INFORMATION
  Report Type: 
  Country: None (occurrence: None)
  Receive Date: 20091022
  Receipt Date: 20091014
  Transmission Date: 20100525
  Serious: Yes (Hospitalization)
  Sender: FDA-Public Use
  Company Number: GR-ASTRAZENECA-2009SE20608

PATIENT
  Age: 75 Year
  Sex: Female

DRUGS (1)
  1. SYMBICORT [Suspect]
     Indication: RESPIRATORY DISORDER
     Dosage: 160+4.5 MCG BID
     Route: 055
     Dates: start: 20091001, end: 20091011

REACTIONS (2)
  - SWELLING FACE [None]
  - SWOLLEN TONGUE [None]
